FAERS Safety Report 7878135-0 (Version None)
Quarter: 2011Q4

REPORT INFORMATION
  Report Type: 
  Country: None (occurrence: None)
  Receive Date: 20111101
  Receipt Date: 20111024
  Transmission Date: 20120403
  Serious: No
  Sender: FDA-Public Use
  Company Number: US-BIOGENIDEC-2011BI040542

PATIENT
  Age: 50 Year
  Sex: Male

DRUGS (1)
  1. TYSABRI [Suspect]
     Indication: MULTIPLE SCLEROSIS
     Route: 042
     Dates: start: 20100601

REACTIONS (8)
  - MOOD SWINGS [None]
  - SKELETAL INJURY [None]
  - MUSCLE SPASTICITY [None]
  - FEAR OF DEATH [None]
  - POOR DENTAL CONDITION [None]
  - PROCEDURAL PAIN [None]
  - INSOMNIA [None]
  - FALL [None]
